FAERS Safety Report 6431831-4 (Version None)
Quarter: 2009Q4

REPORT INFORMATION
  Report Type: 
  Country: None (occurrence: None)
  Receive Date: 20091104
  Receipt Date: 20091001
  Transmission Date: 20100525
  Serious: Yes (Hospitalization, Disabling)
  Sender: FDA-Public Use
  Company Number: 2009-4317

PATIENT
  Age: 55 Year
  Sex: Male

DRUGS (9)
  1. DYSPORT [Suspect]
     Dosage: TWO INJECTION SITES); SINGLE CYCLE
     Dates: start: 20090211, end: 20090211
  2. T. HERMOLEPSIN RETINAL(CARBAMAZEPINE) [Concomitant]
  3. ACETYLSALICYLIC ACID SRT [Concomitant]
  4. PERSANTIN DEPOT (DIPYRIDAMOLE) [Concomitant]
  5. INJ BETOLVEX (CYANOCOBALAMIN) [Concomitant]
  6. T. SELOKEN ZOC (METOPROLOL SUCCINATE) [Concomitant]
  7. T. NATRUM GLOND (ALL OTHER THERAPEUTIC PRODUCTS) [Concomitant]
  8. LASIX [Concomitant]
  9. SIMVASTATIN [Concomitant]

REACTIONS (1)
  - DEEP VEIN THROMBOSIS [None]
